FAERS Safety Report 23082923 (Version 1)
Quarter: 2023Q4

REPORT INFORMATION
  Report Type: Spontaneous
  Country: MA (occurrence: MA)
  Receive Date: 20231019
  Receipt Date: 20231019
  Transmission Date: 20240109
  Serious: Yes (Other)
  Sender: FDA-Public Use
  Company Number: MA-AMGEN-MARSP2023183725

PATIENT

DRUGS (1)
  1. ADALIMUMAB [Suspect]
     Active Substance: ADALIMUMAB\ISOPROPYL ALCOHOL
     Indication: Takayasu^s arteritis
     Dosage: UNK
     Route: 065

REACTIONS (6)
  - Takayasu^s arteritis [Unknown]
  - Tuberculosis of central nervous system [Unknown]
  - Blindness [Unknown]
  - Coarctation of the aorta [Unknown]
  - Fistula [Unknown]
  - Off label use [Unknown]
